FAERS Safety Report 22067581 (Version 2)
Quarter: 2023Q1

REPORT INFORMATION
  Report Type: Spontaneous
  Country: FR (occurrence: FR)
  Receive Date: 20230307
  Receipt Date: 20230310
  Transmission Date: 20230417
  Serious: Yes (Other)
  Sender: FDA-Public Use
  Company Number: FR-MYLANLABS-2023M1018871

PATIENT

DRUGS (4)
  1. PASIREOTIDE [Suspect]
     Active Substance: PASIREOTIDE
     Indication: Pituitary tumour
  2. TEMOZOLOMIDE [Suspect]
     Active Substance: TEMOZOLOMIDE
     Indication: Pituitary tumour
     Dosage: CYCLIC
     Route: 065
  3. CABERGOLINE [Suspect]
     Active Substance: CABERGOLINE
     Indication: Pituitary tumour
     Dosage: UNK
     Route: 065
  4. QUINAGOLIDE [Suspect]
     Active Substance: QUINAGOLIDE
     Indication: Pituitary tumour

REACTIONS (2)
  - Disease progression [Unknown]
  - Drug ineffective [Recovered/Resolved]
